FAERS Safety Report 5952304-9 (Version None)
Quarter: 2008Q4

REPORT INFORMATION
  Report Type: 
  Country: None (occurrence: None)
  Receive Date: 20081113
  Receipt Date: 20081023
  Transmission Date: 20090506
  Serious: No
  Sender: FDA-Public Use
  Company Number: FR-PFIZER INC-2008069914

PATIENT
  Sex: Male
  Weight: 58 kg

DRUGS (1)
  1. SU-011,248 [Suspect]
     Indication: RENAL CELL CARCINOMA
     Route: 048
     Dates: start: 20080628

REACTIONS (1)
  - NO ADVERSE EVENT [None]
